FAERS Safety Report 10203739 (Version 1)
Quarter: 2014Q2

REPORT INFORMATION
  Report Type: Spontaneous
  Country: GB (occurrence: None)
  Receive Date: 20140523
  Receipt Date: 20140523
  Transmission Date: 20141212
  Serious: Yes (Hospitalization, Other)
  Sender: FDA-Public Use
  Company Number: CL-564-2014

PATIENT
  Age: 59 Year
  Sex: Female

DRUGS (1)
  1. LEVOFLOXACIN [Suspect]
     Indication: INFECTION
     Dosage: FEW DAYS.

REACTIONS (19)
  - Flushing [None]
  - Amnesia [None]
  - Paraesthesia [None]
  - Asthenia [None]
  - Depression [None]
  - Paraesthesia [None]
  - Paraesthesia [None]
  - Impaired work ability [None]
  - Loss of employment [None]
  - Flat affect [None]
  - Intervertebral disc protrusion [None]
  - Cyst [None]
  - Emotional disorder [None]
  - Disturbance in attention [None]
  - Poor quality sleep [None]
  - Frustration [None]
  - Major depression [None]
  - Dementia [None]
  - Conversion disorder [None]
